FAERS Safety Report 18115674 (Version 3)
Quarter: 2020Q3

REPORT INFORMATION
  Report Type: Spontaneous
  Country: BE (occurrence: BE)
  Receive Date: 20200805
  Receipt Date: 20200826
  Transmission Date: 20201103
  Serious: Yes (Other)
  Sender: FDA-Public Use
  Company Number: BE-PFIZER INC-2020291668

PATIENT
  Age: 35 Year
  Sex: Male

DRUGS (19)
  1. NEPAFENAC [Suspect]
     Active Substance: NEPAFENAC
     Indication: SCLERITIS
  2. CHLORHEXIDINE [Concomitant]
     Active Substance: CHLORHEXIDINE
     Indication: ACANTHAMOEBA KERATITIS
     Dosage: UNK (0.02%, SIX TIMES A DAY)
     Route: 061
  3. POLYHEXAMETHYLENE BIGUANIDE HYDROCHLORIDE [Concomitant]
     Active Substance: POLIHEXANIDE HYDROCHLORIDE
     Indication: ACANTHAMOEBA KERATITIS
     Dosage: UNK (0.02%, ALL SIX TIMES A DAY)
     Route: 061
  4. SOLU?MEDROL [Suspect]
     Active Substance: METHYLPREDNISOLONE SODIUM SUCCINATE
     Indication: ACANTHAMOEBA KERATITIS
     Dosage: 1 G (FOR 3 DAYS)
     Route: 042
  5. IBUPROFEN. [Suspect]
     Active Substance: IBUPROFEN
     Indication: ACANTHAMOEBA KERATITIS
     Dosage: 600 MG, 3X/DAY
     Route: 048
  6. DESOMEDINE [Concomitant]
     Active Substance: HEXAMIDINE DIISETHIONATE
     Indication: ACANTHAMOEBA KERATITIS
     Dosage: UNK (0.1%, SIX TIMES A DAY)
     Route: 061
  7. MOXIFLOXACINE [Concomitant]
     Active Substance: MOXIFLOXACIN
     Indication: ACANTHAMOEBA INFECTION
     Dosage: UNK (0.5% SIX TIMES A DAY)
     Route: 061
  8. ACYCLOVIR [ACICLOVIR] [Concomitant]
     Active Substance: ACYCLOVIR
     Indication: PROPHYLAXIS
     Route: 048
  9. PREDNISOLONE. [Concomitant]
     Active Substance: PREDNISOLONE
     Indication: ACANTHAMOEBA INFECTION
     Dosage: UNK UNK, 4X/DAY (1%)
     Route: 061
  10. METHYLPREDNISOLONE. [Suspect]
     Active Substance: METHYLPREDNISOLONE
     Indication: ACANTHAMOEBA KERATITIS
     Dosage: UNK
     Route: 048
  11. NEPAFENAC [Suspect]
     Active Substance: NEPAFENAC
     Indication: ACANTHAMOEBA KERATITIS
     Dosage: UNK, DAILY (0.1%)
     Route: 061
  12. IBUPROFEN. [Suspect]
     Active Substance: IBUPROFEN
     Indication: SCLERITIS
  13. AMPHOTERICIN B. [Concomitant]
     Active Substance: AMPHOTERICIN B
     Indication: ACANTHAMOEBA KERATITIS
     Dosage: UNK (DROPS 0.15% SIX TIMES A DAY)
  14. ITRACONAZOLE. [Concomitant]
     Active Substance: ITRACONAZOLE
     Dosage: 100 MG
     Route: 048
  15. ATROPINE. [Concomitant]
     Active Substance: ATROPINE
     Indication: ACANTHAMOEBA INFECTION
     Dosage: UNK UNK, 2X/DAY (1%)
     Route: 061
  16. SOLU?MEDROL [Suspect]
     Active Substance: METHYLPREDNISOLONE SODIUM SUCCINATE
     Indication: SCLERITIS
  17. METHYLPREDNISOLONE. [Suspect]
     Active Substance: METHYLPREDNISOLONE
     Indication: SCLERITIS
  18. AZATHIOPRINE. [Suspect]
     Active Substance: AZATHIOPRINE
     Indication: ACANTHAMOEBA KERATITIS
     Dosage: 150 MG, DAILY
  19. AZATHIOPRINE. [Suspect]
     Active Substance: AZATHIOPRINE
     Indication: SCLERITIS

REACTIONS (8)
  - Drug ineffective [Unknown]
  - Corneal oedema [Unknown]
  - Anaemia [Unknown]
  - Bronchopulmonary aspergillosis [Unknown]
  - Myopathy [Unknown]
  - Osteonecrosis [Unknown]
  - Muscle atrophy [Unknown]
  - Blood lactate dehydrogenase increased [Unknown]
